FAERS Safety Report 25224633 (Version 5)
Quarter: 2025Q3

REPORT INFORMATION
  Report Type: Spontaneous
  Country: CN (occurrence: CN)
  Receive Date: 20250422
  Receipt Date: 20250829
  Transmission Date: 20251021
  Serious: Yes (Death)
  Sender: ABBVIE
  Company Number: CN-PFIZER INC-PV202500046061

PATIENT
  Age: 68 Year
  Sex: Female

DRUGS (7)
  1. AVIBACTAM SODIUM\CEFTAZIDIME [Suspect]
     Active Substance: AVIBACTAM SODIUM\CEFTAZIDIME
     Indication: Pneumonia
     Route: 042
     Dates: start: 20250310
  2. AVIBACTAM SODIUM\CEFTAZIDIME [Suspect]
     Active Substance: AVIBACTAM SODIUM\CEFTAZIDIME
     Indication: Pneumonia
     Route: 065
     Dates: start: 20250317
  3. AVIBACTAM SODIUM\CEFTAZIDIME [Suspect]
     Active Substance: AVIBACTAM SODIUM\CEFTAZIDIME
     Indication: Pneumonia
     Route: 042
     Dates: start: 20250310, end: 20250322
  4. CEFOPERAZONE SODIUM\SULBACTAM SODIUM [Suspect]
     Active Substance: CEFOPERAZONE SODIUM\SULBACTAM SODIUM
     Indication: Pneumonia
     Route: 065
  5. POLYMYXIN [Suspect]
     Active Substance: POLYMYXIN
     Indication: Product used for unknown indication
     Route: 065
  6. ERAVACYCLINE [Suspect]
     Active Substance: ERAVACYCLINE
     Indication: Product used for unknown indication
     Route: 065
  7. EMODIN [Suspect]
     Active Substance: EMODIN
     Indication: Product used for unknown indication
     Route: 065

REACTIONS (5)
  - Pneumonia [Fatal]
  - Pneumonia [Fatal]
  - Septic shock [Fatal]
  - Pneumonia klebsiella [Fatal]
  - Pathogen resistance [Fatal]

NARRATIVE: CASE EVENT DATE: 20250101
